FAERS Safety Report 9847744 (Version 1)
Quarter: 2014Q1

REPORT INFORMATION
  Report Type: Spontaneous
  Country: US (occurrence: US)
  Receive Date: 20140128
  Receipt Date: 20140128
  Transmission Date: 20141002
  Serious: No
  Sender: FDA-Public Use
  Company Number: US-BIOGENIDEC-2013BI086092

PATIENT
  Age: 53 Year
  Sex: Female

DRUGS (12)
  1. TECFIDERA [Suspect]
     Indication: MULTIPLE SCLEROSIS
     Route: 048
     Dates: start: 20130723
  2. TECFIDERA [Suspect]
     Indication: MULTIPLE SCLEROSIS
     Route: 048
     Dates: start: 20130816
  3. PROTONIX [Concomitant]
  4. LIPITOR [Concomitant]
  5. VIVELLE [Concomitant]
  6. EXFORGE [Concomitant]
  7. PROPANOLOL [Concomitant]
  8. COLACE [Concomitant]
  9. MIRALAX [Concomitant]
  10. B12 [Concomitant]
  11. D3 [Concomitant]
  12. AMPYRA [Concomitant]

REACTIONS (6)
  - Insomnia [Unknown]
  - Flushing [Not Recovered/Not Resolved]
  - Abdominal pain [Unknown]
  - Diarrhoea [Recovered/Resolved]
  - Nausea [Recovered/Resolved]
  - Abdominal discomfort [Recovered/Resolved]
